FAERS Safety Report 9257087 (Version 2)
Quarter: 2013Q2

REPORT INFORMATION
  Report Type: Spontaneous
  Country: JP (occurrence: None)
  Receive Date: 20130423
  Receipt Date: 20130522
  Transmission Date: 20140414
  Serious: Yes (Hospitalization)
  Sender: FDA-Public Use
  Company Number: SPI201300243

PATIENT
  Age: 66 Year
  Sex: Male

DRUGS (15)
  1. AMITIZA (LUBIPROSTONE) [Suspect]
     Indication: CONSTIPATION
     Route: 048
     Dates: start: 20130324, end: 20130325
  2. PERSANTIN-I (DIPYRIDAMOLE) [Concomitant]
  3. BAYASPIRIN (ACETYLASLICYLIC ACID) [Concomitant]
  4. ZANTAC (RANITIDINE HYDROCHLORIDE) [Concomitant]
  5. DORNER (BERAPROST SODIUM) [Concomitant]
  6. METHYCOBAL (MECOBALAMIN) [Concomitant]
  7. JUVELA N (TOCOPHERYL NICOTINATE) [Concomitant]
  8. KINEDAK (EPALRESTAT) [Concomitant]
  9. AVAPRO (IRBESARTAN) [Concomitant]
  10. SHAKUYAKUKANZOTO [Concomitant]
  11. PURSENNID (SENNOSIDE A+B) [Concomitant]
  12. LANSOPRAZOLE (LANSOPRAZOLE) [Concomitant]
  13. CALTAN (CALCIUM CARBONATE) [Concomitant]
  14. EXFORGE (AMLODIPINE BESILATE, VALSARTAN) [Concomitant]
  15. ALOSENN (ACHILLEA MILLEFOLIUM, RUBIA TINCTORUM ROOT TINCTURE, SENNA ALEXANDRIAN FRUIT, SENNA ALEXANDRIAN LEAF, TARAXACUM OFFICINALE) [Concomitant]

REACTIONS (5)
  - Pyrexia [None]
  - Diarrhoea [None]
  - Dehydration [None]
  - General physical health deterioration [None]
  - Abdominal pain [None]
